FAERS Safety Report 5208871-6 (Version None)
Quarter: 2007Q1

REPORT INFORMATION
  Report Type: 
  Country: None (occurrence: None)
  Receive Date: 20070111
  Receipt Date: 20070111
  Transmission Date: 20070707
  Serious: Yes (Death)
  Sender: FDA-Public Use
  Company Number: None

PATIENT
  Sex: Female
  Weight: 104.3273 kg

DRUGS (2)
  1. TOPAMAX [Suspect]
     Indication: EPILEPSY
     Dosage: 200 MG BID PO
     Route: 048
  2. DILANTIN [Suspect]
     Dosage: 300 MG/200 MG BID PO   45-50 YEARS
     Route: 048

REACTIONS (4)
  - FALL [None]
  - GRAND MAL CONVULSION [None]
  - INCONTINENCE [None]
  - RESPIRATORY ARREST [None]
